FAERS Safety Report 8360452-1 (Version None)
Quarter: 2012Q2

REPORT INFORMATION
  Report Type: 
  Country: None (occurrence: None)
  Receive Date: 20120515
  Receipt Date: 20120510
  Transmission Date: 20120825
  Serious: Yes (Other)
  Sender: FDA-Public Use
  Company Number: FR-ABBOTT-12P-056-0924145-00

PATIENT
  Sex: Male

DRUGS (4)
  1. OROCAL D3 [Concomitant]
     Indication: PRODUCT USED FOR UNKNOWN INDICATION
     Route: 048
     Dates: start: 20090101
  2. ZESTRIL [Concomitant]
     Indication: HYPERTENSION
     Route: 048
     Dates: start: 19950101
  3. LUPRON [Suspect]
     Indication: PROSTATE CANCER
     Route: 058
     Dates: start: 20030101
  4. AMLODIPINE BESYLATE [Concomitant]
     Indication: HYPERTENSION
     Route: 048
     Dates: start: 20010101

REACTIONS (1)
  - ANAEMIA [None]
